FAERS Safety Report 4371215-6 (Version None)
Quarter: 2004Q2

REPORT INFORMATION
  Report Type: 
  Country: None (occurrence: None)
  Receive Date: 20040604
  Receipt Date: 19840409
  Transmission Date: 20050107
  Serious: Yes (Hospitalization, Congenital Anomaly)
  Sender: FDA-Public Use
  Company Number: 840200576001

PATIENT

DRUGS (2)
  1. ACCUTANE [Suspect]
     Dates: start: 19840109, end: 19840330
  2. ACCUTANE [Suspect]
     Dates: start: 19831118, end: 19840108

REACTIONS (31)
  - ANAL ATRESIA [None]
  - ANAL FISTULA [None]
  - ANOREXIA [None]
  - ARTHROPATHY [None]
  - CONGENITAL EYE DISORDER [None]
  - CONGENITAL MUSCULOSKELETAL ANOMALY [None]
  - DERMATITIS DIAPER [None]
  - DEVELOPMENTAL DELAY [None]
  - DRUG EXPOSURE DURING PREGNANCY [None]
  - GROWTH RETARDATION [None]
  - HORSESHOE KIDNEY [None]
  - HYPOTONIA [None]
  - ILL-DEFINED DISORDER [None]
  - INCONTINENCE [None]
  - INFECTION [None]
  - INGUINAL HERNIA [None]
  - INTESTINAL OBSTRUCTION [None]
  - MOTOR DYSFUNCTION [None]
  - NERVE INJURY [None]
  - PAIN IN EXTREMITY [None]
  - PHIMOSIS [None]
  - PTERYGIUM COLLI [None]
  - PYREXIA [None]
  - RENAL DISORDER [None]
  - RENAL HYPERTROPHY [None]
  - RESPIRATORY SYNCYTIAL VIRUS INFECTION [None]
  - RIB DEFORMITY [None]
  - SCOLIOSIS [None]
  - SPINE MALFORMATION [None]
  - TALIPES [None]
  - VOMITING [None]
